FAERS Safety Report 18570605 (Version 1)
Quarter: 2020Q4

REPORT INFORMATION
  Report Type: Other
  Country: FR (occurrence: FR)
  Receive Date: 20201202
  Receipt Date: 20201202
  Transmission Date: 20210114
  Serious: Yes (Other)
  Sender: FDA-Public Use
  Company Number: FR-VALIDUS PHARMACEUTICALS LLC-FR-2020VAL001009

PATIENT

DRUGS (4)
  1. FLAGYL [Suspect]
     Active Substance: METRONIDAZOLE\METRONIDAZOLE HYDROCHLORIDE
     Indication: SUPERINFECTION
     Dosage: UNK
     Route: 048
     Dates: start: 20201021
  2. FLAGYL [Suspect]
     Active Substance: METRONIDAZOLE\METRONIDAZOLE HYDROCHLORIDE
     Indication: SUPERINFECTION
     Dosage: UNK
     Route: 042
     Dates: start: 20201016, end: 20201021
  3. CEFOTAXIME SODIUM [Suspect]
     Active Substance: CEFOTAXIME SODIUM
     Indication: SUPERINFECTION
     Dosage: UNK
     Route: 042
     Dates: start: 20201013, end: 20201016
  4. CEFEPIME HYDROCHLORIDE. [Suspect]
     Active Substance: CEFEPIME HYDROCHLORIDE
     Indication: SUPERINFECTION
     Dosage: UNK
     Route: 042
     Dates: start: 20201016

REACTIONS (2)
  - Hypertransaminasaemia [Not Recovered/Not Resolved]
  - Hepatocellular injury [Not Recovered/Not Resolved]

NARRATIVE: CASE EVENT DATE: 20201019
